FAERS Safety Report 18627746 (Version 1)
Quarter: 2020Q4

REPORT INFORMATION
  Report Type: Spontaneous
  Country: US (occurrence: US)
  Receive Date: 20201216
  Receipt Date: 20201216
  Transmission Date: 20210114
  Serious: No
  Sender: FDA-Public Use
  Company Number: None

PATIENT
  Age: 6 Year
  Sex: Male

DRUGS (1)
  1. GOLODIRSEN. [Suspect]
     Active Substance: GOLODIRSEN
     Indication: MUSCULAR DYSTROPHY
     Route: 042

REACTIONS (3)
  - Abdominal pain [None]
  - Flushing [None]
  - Dyspnoea [None]

NARRATIVE: CASE EVENT DATE: 20201123
